FAERS Safety Report 5730235-7 (Version None)
Quarter: 2008Q2

REPORT INFORMATION
  Report Type: 
  Country: None (occurrence: None)
  Receive Date: 20080502
  Receipt Date: 20080418
  Transmission Date: 20081010
  Serious: Yes (Death, Life-Threatening)
  Sender: FDA-Public Use
  Company Number: 2008034612

PATIENT
  Age: 49 Year
  Sex: Female
  Weight: 45 kg

DRUGS (4)
  1. FRAGMIN [Suspect]
     Indication: THROMBOSIS PROPHYLAXIS
     Dosage: 2.500 I.U/0.2 ML TIWCE DAILY
     Dates: start: 20080322, end: 20080330
  2. ACETYLSALICYLIC ACID SRT [Concomitant]
  3. DIGIMERCK  (DIGITOXIN) [Concomitant]
  4. RISPERDAL [Concomitant]

REACTIONS (2)
  - CARDIAC ARREST [None]
  - PULMONARY ARTERY THROMBOSIS [None]
